FAERS Safety Report 10030145 (Version 1)
Quarter: 2014Q1

REPORT INFORMATION
  Report Type: Spontaneous
  Country: US (occurrence: US)
  Receive Date: 20140323
  Receipt Date: 20140323
  Transmission Date: 20141002
  Serious: No
  Sender: FDA-Public Use
  Company Number: US-ALLERGAN-1311471US

PATIENT
  Age: 41 Year
  Sex: Female

DRUGS (4)
  1. LATISSE 0.03% [Suspect]
     Indication: GROWTH OF EYELASHES
     Dosage: 2 DROPS ON THE APPLICATOR, 1-2X/DAY
     Route: 061
     Dates: start: 2012, end: 2012
  2. LATISSE 0.03% [Suspect]
     Dosage: 2 DROPS ON THE APPLICATOR, 1-2X/DAY
     Route: 061
     Dates: start: 201307, end: 201307
  3. MASCARA [Concomitant]
  4. EYELINER [Concomitant]

REACTIONS (6)
  - Pregnancy [Unknown]
  - Expired drug administered [Unknown]
  - Inappropriate schedule of drug administration [Unknown]
  - Incorrect dose administered [Unknown]
  - Wrong technique in drug usage process [Unknown]
  - Drug ineffective [Unknown]
